FAERS Safety Report 9524767 (Version 4)
Quarter: 2014Q2

REPORT INFORMATION
  Report Type: Report from Study
  Country: FR (occurrence: FR)
  Receive Date: 20130916
  Receipt Date: 20140602
  Transmission Date: 20141212
  Serious: Yes (Hospitalization, Other)
  Sender: FDA-Public Use
  Company Number: FR-VERTEX PHARMACEUTICALS INC-2013-009407

PATIENT
  Age: 34 Year
  Sex: Male
  Weight: 77 kg

DRUGS (13)
  1. VX-809 FDC [Suspect]
     Indication: CYSTIC FIBROSIS
     Dosage: 600 MG, QAM
     Route: 048
     Dates: start: 20130909, end: 20130909
  2. VX-770 FDC [Suspect]
     Indication: CYSTIC FIBROSIS
     Dosage: 250 MG, QAM
     Route: 048
  3. VX-770 [Suspect]
     Indication: CYSTIC FIBROSIS
     Dosage: 250 MG, QPM
     Route: 048
  4. PULMOZYME [Concomitant]
     Indication: CYSTIC FIBROSIS
     Dosage: 5.0 G, QD
     Route: 055
     Dates: start: 1981, end: 20130908
  5. CREON 25000 [Concomitant]
     Indication: CYSTIC FIBROSIS
     Dosage: 10 N/A, QD
     Dates: start: 1981, end: 20130909
  6. INNOVAIR [Concomitant]
     Indication: ASTHMA
     Dosage: 2 DF, BID
     Route: 055
     Dates: start: 2008, end: 20130908
  7. AVAMYS [Concomitant]
     Dosage: UNK
     Dates: start: 2008
  8. KESTIN [Concomitant]
     Indication: RHINITIS ALLERGIC
     Dosage: 1 DF, QD, PRN
     Dates: start: 2008, end: 20130909
  9. AZITHROMYCIN [Concomitant]
     Indication: CYSTIC FIBROSIS
     Dosage: 500 MG, QOD
     Route: 048
     Dates: start: 2012, end: 20120908
  10. TOBI [Concomitant]
     Indication: CYSTIC FIBROSIS
     Dosage: 4 DF, BID, EVERY OTHER MONTH
     Route: 055
     Dates: start: 2012, end: 20130820
  11. TOCO [Concomitant]
     Indication: CYSTIC FIBROSIS
     Dosage: 1 DF, QD
     Dates: start: 1981, end: 20130909
  12. VITAMIN A [Concomitant]
     Indication: CYSTIC FIBROSIS
     Dosage: 1 DF, QD
     Dates: start: 1981, end: 20130909
  13. VITAMIN D3 [Concomitant]
     Indication: CYSTIC FIBROSIS
     Dosage: 1 DF, EVERY OTHER MONTH
     Dates: start: 1981, end: 201308

REACTIONS (1)
  - Bronchospasm [Recovered/Resolved]
